FAERS Safety Report 4859051-5 (Version None)
Quarter: 2005Q4

REPORT INFORMATION
  Report Type: 
  Country: None (occurrence: None)
  Receive Date: 20051219
  Receipt Date: 20050909
  Transmission Date: 20060501
  Serious: No
  Sender: FDA-Public Use
  Company Number: US-GLAXOSMITHKLINE-A0573635A

PATIENT
  Age: 51 Year
  Sex: Female

DRUGS (4)
  1. AMERICAN FARE NTS, 21MG STEP 1 [Suspect]
     Dates: start: 20050907
  2. DEPAKOTE [Concomitant]
     Indication: DEPRESSION
  3. LITHOBID [Concomitant]
  4. THYROID TAB [Concomitant]

REACTIONS (5)
  - FEELING DRUNK [None]
  - INSOMNIA [None]
  - NERVOUSNESS [None]
  - PSYCHOMOTOR HYPERACTIVITY [None]
  - TREMOR [None]
